FAERS Safety Report 22096130 (Version 1)
Quarter: 2023Q1

REPORT INFORMATION
  Report Type: Spontaneous
  Country: DE (occurrence: DE)
  Receive Date: 20230315
  Receipt Date: 20230315
  Transmission Date: 20230418
  Serious: Yes (Disabling, Other)
  Sender: FDA-Public Use
  Company Number: None

PATIENT
  Sex: Male
  Weight: 70 kg

DRUGS (38)
  1. ETOPOSIDE [Suspect]
     Active Substance: ETOPOSIDE
     Indication: Ewing^s sarcoma
     Dosage: 3X400MG (CHEMO 6)
     Dates: start: 19891009, end: 19891013
  2. ETOPOSIDE [Suspect]
     Active Substance: ETOPOSIDE
     Dosage: 3X400MG (CHEMO 10)
     Dates: start: 19900119, end: 19900122
  3. ETOPOSIDE [Suspect]
     Active Substance: ETOPOSIDE
     Dosage: 3X400MG (CHEMO 4)
     Dates: start: 19890826, end: 19890830
  4. ETOPOSIDE [Suspect]
     Active Substance: ETOPOSIDE
     Dosage: 1X150MG + 2X400MG (CHEMO 12)
     Dates: start: 19900309, end: 19900313
  5. ETOPOSIDE [Suspect]
     Active Substance: ETOPOSIDE
     Dosage: 3X400MG (CHEMO 8)
     Dates: start: 19891129, end: 19891203
  6. VINCRISTINE [Suspect]
     Active Substance: VINCRISTINE
     Indication: Ewing^s sarcoma
     Dosage: 1X1,5MG (CHEMO 7)
     Dates: start: 19891103, end: 19891107
  7. VINCRISTINE [Suspect]
     Active Substance: VINCRISTINE
     Dosage: 1X2MG (CHEMO 4)
     Dates: start: 19890826, end: 19890830
  8. VINCRISTINE [Suspect]
     Active Substance: VINCRISTINE
     Dosage: 1X2MG (CHEMO 1)
     Dates: start: 19890606, end: 19890612
  9. VINCRISTINE [Suspect]
     Active Substance: VINCRISTINE
     Dosage: 1X2MG (CHEMO 8)
     Dates: start: 19891129, end: 19891203
  10. VINCRISTINE [Suspect]
     Active Substance: VINCRISTINE
     Dosage: 1X1,5MG (CHEMO 5)
     Dates: start: 19890915, end: 19890919
  11. VINCRISTINE [Suspect]
     Active Substance: VINCRISTINE
     Dosage: CHEMO 3
     Dates: start: 19890720, end: 19890725
  12. VINCRISTINE [Suspect]
     Active Substance: VINCRISTINE
     Dosage: 1X2MG (CHEMO 10)
     Dates: start: 19900119, end: 19900122
  13. VINCRISTINE [Suspect]
     Active Substance: VINCRISTINE
     Dosage: 1X1MG (CHEMO 11)
     Dates: start: 19900214, end: 19900217
  14. VINCRISTINE [Suspect]
     Active Substance: VINCRISTINE
     Dosage: CHEMO 9
     Dates: start: 19891226, end: 19891230
  15. VINCRISTINE [Suspect]
     Active Substance: VINCRISTINE
     Dosage: 1X2 MG (CHEMO 2)
     Dates: start: 19890628, end: 19890703
  16. CYCLOPHOSPHAMIDE [Suspect]
     Active Substance: CYCLOPHOSPHAMIDE
     Indication: Ewing^s sarcoma
     Dosage: 3X800MG (CHEMO 10)
     Dates: start: 19900119, end: 19900122
  17. CYCLOPHOSPHAMIDE [Suspect]
     Active Substance: CYCLOPHOSPHAMIDE
     Dosage: 3X800MG (CHEMO 11)
     Dates: start: 19900214, end: 19900217
  18. IFOSFAMIDE [Suspect]
     Active Substance: IFOSFAMIDE
     Indication: Ewing^s sarcoma
     Dosage: 4X3000MG (CHEMO 12)
     Dates: start: 19900309, end: 19900313
  19. IFOSFAMIDE [Suspect]
     Active Substance: IFOSFAMIDE
     Dosage: CHEMO 9
     Dates: start: 19891226, end: 19891230
  20. IFOSFAMIDE [Suspect]
     Active Substance: IFOSFAMIDE
     Dosage: 3X3000 MG (CHEMO 1)
     Dates: start: 19890606, end: 19890612
  21. IFOSFAMIDE [Suspect]
     Active Substance: IFOSFAMIDE
     Dosage: 3X3000MG (CHEMO 5)
     Dates: start: 19890915, end: 19890919
  22. IFOSFAMIDE [Suspect]
     Active Substance: IFOSFAMIDE
     Dosage: CHEMO 3
     Dates: start: 19890720, end: 19890725
  23. IFOSFAMIDE [Suspect]
     Active Substance: IFOSFAMIDE
     Dosage: 4X3000 MG (CHEMO 4)
     Dates: start: 19890826, end: 19890830
  24. IFOSFAMIDE [Suspect]
     Active Substance: IFOSFAMIDE
     Dosage: 3X3000MG , 1X2000MG (CHEMO 6)
     Dates: start: 19891009, end: 19891013
  25. IFOSFAMIDE [Suspect]
     Active Substance: IFOSFAMIDE
     Dosage: 3X3000MG (CHEMO 2)
     Dates: start: 19890628, end: 19890703
  26. IFOSFAMIDE [Suspect]
     Active Substance: IFOSFAMIDE
     Dosage: 2X2000MG, 2X3000MG (CHEMO 8)
     Dates: start: 19891129, end: 19891203
  27. IFOSFAMIDE [Suspect]
     Active Substance: IFOSFAMIDE
     Dosage: 3X3000MG (CHEMO 7)
     Dates: start: 19891103, end: 19891107
  28. DACTINOMYCIN [Suspect]
     Active Substance: DACTINOMYCIN
     Indication: Ewing^s sarcoma
     Dosage: 3X1MG (CHEMO 11)
     Dates: start: 19900214, end: 19900217
  29. DACTINOMYCIN [Suspect]
     Active Substance: DACTINOMYCIN
     Dosage: 3X1MG (CHEMO 6)
     Dates: start: 19891009, end: 19891013
  30. DACTINOMYCIN [Suspect]
     Active Substance: DACTINOMYCIN
     Dosage: CHEMO 3
     Dates: start: 19890720, end: 19890725
  31. DACTINOMYCIN [Suspect]
     Active Substance: DACTINOMYCIN
     Dosage: 3X1MG (CHEMO 2)
     Dates: start: 19890628, end: 19890703
  32. DACTINOMYCIN [Suspect]
     Active Substance: DACTINOMYCIN
     Dosage: 3X1MG (CHEMO 5)
     Dates: start: 19890915, end: 19890919
  33. DACTINOMYCIN [Suspect]
     Active Substance: DACTINOMYCIN
     Dosage: 2X1 MG (CHEMO1)
     Dates: start: 19890606, end: 19890612
  34. ADRIAMYCIN [Suspect]
     Active Substance: DOXORUBICIN HYDROCHLORIDE
     Indication: Ewing^s sarcoma
     Dosage: 2X60MG ?  (CHEMO 2)
     Dates: start: 19890628, end: 19890703
  35. ADRIAMYCIN [Suspect]
     Active Substance: DOXORUBICIN HYDROCHLORIDE
     Dosage: 2X 60MG (CHEMO 1)
     Dates: start: 19890606, end: 19890612
  36. ADRIAMYCIN [Suspect]
     Active Substance: DOXORUBICIN HYDROCHLORIDE
     Dosage: 2X60MG ? (CHEMO 5)
     Dates: start: 19890915, end: 19890919
  37. ADRIAMYCIN [Suspect]
     Active Substance: DOXORUBICIN HYDROCHLORIDE
     Dosage: 2X60MG ? (CHEMO 4)
     Dates: start: 19890826, end: 19890830
  38. ADRIAMYCIN [Suspect]
     Active Substance: DOXORUBICIN HYDROCHLORIDE
     Dosage: CHEMO 3
     Dates: start: 19890720, end: 19890725

REACTIONS (11)
  - Disorientation [Recovered/Resolved with Sequelae]
  - Seizure [Unknown]
  - Hallucination [Unknown]
  - Nausea [Recovered/Resolved with Sequelae]
  - Headache [Not Recovered/Not Resolved]
  - Altered state of consciousness [Unknown]
  - Fatigue [Not Recovered/Not Resolved]
  - Confusional state [Unknown]
  - Vomiting [Unknown]
  - Asthenia [Not Recovered/Not Resolved]
  - Muscle spasms [Unknown]
